FAERS Safety Report 17754389 (Version 1)
Quarter: 2020Q2

REPORT INFORMATION
  Report Type: Spontaneous
  Country: US (occurrence: US)
  Receive Date: 20200507
  Receipt Date: 20200507
  Transmission Date: 20200714
  Serious: Yes (Death, Hospitalization, Other)
  Sender: FDA-Public Use
  Company Number: US-ASTELLAS-2020US015421

PATIENT
  Age: 6 Year
  Sex: Male

DRUGS (3)
  1. TACROLIMUS. [Suspect]
     Active Substance: TACROLIMUS
     Indication: PROPHYLAXIS AGAINST GRAFT VERSUS HOST DISEASE
  2. TACROLIMUS. [Suspect]
     Active Substance: TACROLIMUS
     Indication: RENAL TRANSPLANT
  3. TACROLIMUS. [Suspect]
     Active Substance: TACROLIMUS
     Indication: LIVER TRANSPLANT
     Dosage: UNK UNK, UNKNOWN FREQ.
     Route: 065

REACTIONS (14)
  - Epstein-Barr viraemia [Recovered/Resolved]
  - Small intestinal obstruction [Fatal]
  - Transaminases increased [Recovering/Resolving]
  - Seizure [Unknown]
  - Pleural effusion [Fatal]
  - Respiratory failure [Fatal]
  - Post transplant lymphoproliferative disorder [Recovered/Resolved]
  - Adenocarcinoma of colon [Fatal]
  - Adenoviral haemorrhagic cystitis [Recovered/Resolved]
  - Pleural effusion [Unknown]
  - Cardiac arrest [Fatal]
  - Hypertension [Unknown]
  - Device related sepsis [Unknown]
  - Renal failure [Recovered/Resolved]

NARRATIVE: CASE EVENT DATE: 2007
